FAERS Safety Report 15900082 (Version 1)
Quarter: 2019Q1

REPORT INFORMATION
  Report Type: Spontaneous
  Country: PS (occurrence: PS)
  Receive Date: 20190201
  Receipt Date: 20190201
  Transmission Date: 20190417
  Serious: Yes (Life-Threatening, Hospitalization)
  Sender: FDA-Public Use
  Company Number: PS-BAYER-2019-020268

PATIENT
  Age: 64 Year
  Sex: Male

DRUGS (7)
  1. CADEX [BICALUTAMIDE] [Concomitant]
     Dosage: 1 DF, QD
  2. HEPARIN [Suspect]
     Active Substance: HEPARIN SODIUM
     Dosage: UNK
  3. XARELTO [Suspect]
     Active Substance: RIVAROXABAN
     Indication: AORTIC BYPASS
     Dosage: 15 MG, BID
     Route: 048
     Dates: start: 20190119, end: 20190121
  4. ACETYLSALICYLIC ACID({=100 MG) [Suspect]
     Active Substance: ASPIRIN
     Dosage: 1 DF, QD
  5. GLYCERYL TRINITRATE [Concomitant]
     Active Substance: NITROGLYCERIN
     Dosage: 1 DF, QD
     Route: 062
  6. ALDACTONE [POTASSIUM CANRENOATE] [Concomitant]
     Active Substance: CANRENOATE POTASSIUM
     Dosage: 1 DF, QD
  7. EXFORGE [Concomitant]
     Active Substance: AMLODIPINE BESYLATE\VALSARTAN
     Dosage: 1 DF, QD
     Route: 048

REACTIONS (5)
  - Product use in unapproved indication [None]
  - Haemorrhage [None]
  - Off label use [None]
  - Post procedural discharge [Recovered/Resolved]
  - International normalised ratio increased [None]

NARRATIVE: CASE EVENT DATE: 201901
